FAERS Safety Report 26169792 (Version 1)
Quarter: 2025Q4

REPORT INFORMATION
  Report Type: Spontaneous
  Country: US (occurrence: US)
  Receive Date: 20251217
  Receipt Date: 20251217
  Transmission Date: 20260118
  Serious: No
  Sender: BIOMARIN
  Company Number: US-BIOMARINAP-US-2025-170503

PATIENT
  Sex: Male

DRUGS (1)
  1. VIMIZIM [Suspect]
     Active Substance: ELOSULFASE ALFA
     Indication: Product used for unknown indication

REACTIONS (4)
  - General physical health deterioration [Unknown]
  - Urinary glycosaminoglycans increased [Unknown]
  - Drug specific antibody present [Unknown]
  - Drug ineffective [Unknown]
